FAERS Safety Report 6604061-0 (Version None)
Quarter: 2010Q1

REPORT INFORMATION
  Report Type: 
  Country: None (occurrence: None)
  Receive Date: 20100226
  Receipt Date: 20090501
  Transmission Date: 20100710
  Serious: No
  Sender: FDA-Public Use
  Company Number: A0781647A

PATIENT
  Age: 59 Year
  Sex: Female

DRUGS (4)
  1. LAMICTAL CD [Suspect]
     Indication: BIPOLAR DISORDER
     Dosage: 250MG VARIABLE DOSE
     Route: 048
     Dates: start: 20040101
  2. NORVASC [Concomitant]
  3. COREG [Concomitant]
  4. ALTACE [Concomitant]

REACTIONS (2)
  - MIGRAINE [None]
  - SINUS DISORDER [None]
